FAERS Safety Report 9397229 (Version 1)
Quarter: 2013Q3

REPORT INFORMATION
  Report Type: Spontaneous
  Country: US (occurrence: US)
  Receive Date: 20130712
  Receipt Date: 20130712
  Transmission Date: 20140515
  Serious: Yes (Other)
  Sender: FDA-Public Use
  Company Number: US-JNJFOC-20130701564

PATIENT
  Age: 76 Year
  Sex: Male
  Weight: 75.75 kg

DRUGS (7)
  1. XARELTO [Suspect]
     Indication: ANGINA PECTORIS
     Route: 048
     Dates: start: 20130620
  2. XARELTO [Suspect]
     Indication: SICK SINUS SYNDROME
     Route: 048
     Dates: start: 20130620
  3. XARELTO [Suspect]
     Indication: CEREBROVASCULAR ACCIDENT PROPHYLAXIS
     Route: 048
     Dates: start: 20130620
  4. XARELTO [Suspect]
     Indication: ATRIAL FIBRILLATION
     Route: 048
     Dates: start: 20130620
  5. GLIPIZIDE [Concomitant]
     Indication: DIABETES MELLITUS
     Route: 065
     Dates: start: 1980
  6. NADOLOL [Concomitant]
     Route: 065
     Dates: start: 1980
  7. HCTZ [Concomitant]
     Route: 065
     Dates: start: 1980

REACTIONS (2)
  - Surgery [Unknown]
  - Anorgasmia [Unknown]
